FAERS Safety Report 8475397-6 (Version None)
Quarter: 2012Q2

REPORT INFORMATION
  Report Type: 
  Country: None (occurrence: None)
  Receive Date: 20120628
  Receipt Date: 20120620
  Transmission Date: 20120825
  Serious: Yes (Hospitalization)
  Sender: FDA-Public Use
  Company Number: FR-ROCHE-1080590

PATIENT
  Sex: Male

DRUGS (8)
  1. ASPIRIN [Concomitant]
     Dates: start: 20090101
  2. VENTOLIN [Concomitant]
     Dates: start: 20090101
  3. NEXIUM [Concomitant]
     Dates: start: 20090101
  4. ATARAX [Concomitant]
     Dates: start: 20090101
  5. DILTIAZEM HCL [Concomitant]
     Dates: start: 20090101
  6. MABTHERA [Suspect]
     Indication: IDIOPATHIC THROMBOCYTOPENIC PURPURA
     Route: 042
     Dates: start: 20120326, end: 20120419
  7. CRESTOR [Concomitant]
     Route: 048
     Dates: start: 20090101
  8. FLUTICASONE PROPIONATE/SALMETEROL [Concomitant]
     Dates: start: 20090101

REACTIONS (2)
  - ORGANISING PNEUMONIA [None]
  - PNEUMONIA CYTOMEGALOVIRAL [None]
